FAERS Safety Report 4528885-9 (Version None)
Quarter: 2004Q4

REPORT INFORMATION
  Report Type: 
  Country: None (occurrence: None)
  Receive Date: 20041214
  Receipt Date: 20041117
  Transmission Date: 20050328
  Serious: No
  Sender: FDA-Public Use
  Company Number: A01200404419

PATIENT
  Age: 66 Year
  Sex: Male

DRUGS (6)
  1. PLAVIX [Suspect]
     Indication: CORONARY ANGIOPLASTY
     Dosage: 75 MG QD
     Route: 048
  2. ASPIRIN [Suspect]
     Dosage: 160 MG QD
     Route: 048
  3. SECTRAL [Concomitant]
  4. ZESTRIL [Concomitant]
  5. PRAVASTATIN [Concomitant]
  6. DYSALFA (TERAZOSIN) [Concomitant]

REACTIONS (3)
  - MACULAR DEGENERATION [None]
  - METAMORPHOPSIA [None]
  - RETINAL HAEMORRHAGE [None]
